FAERS Safety Report 14008006 (Version 1)
Quarter: 2017Q3

REPORT INFORMATION
  Report Type: Spontaneous
  Country: US (occurrence: None)
  Receive Date: 20170925
  Receipt Date: 20170925
  Transmission Date: 20171128
  Serious: No
  Sender: FDA-Public Use
  Company Number: None

PATIENT
  Age: 73 Year
  Sex: Female
  Weight: 150 kg

DRUGS (5)
  1. ZNGLOCONATE [Concomitant]
  2. P-MANNOSE [Concomitant]
  3. HYDROCLOROTHIAZIDE [Suspect]
     Active Substance: HYDROCHLOROTHIAZIDE
     Indication: HYPERTENSION
     Dosage: 1 PILL
     Route: 048
     Dates: start: 20150101, end: 20160801
  4. CRANBERRY. [Concomitant]
     Active Substance: CRANBERRY
  5. ASA [Concomitant]
     Active Substance: ASPIRIN

REACTIONS (7)
  - Dysphagia [None]
  - Cough [None]
  - Pruritus [None]
  - Dry skin [None]
  - Fatigue [None]
  - Skin odour abnormal [None]
  - Anxiety [None]

NARRATIVE: CASE EVENT DATE: 20160801
